FAERS Safety Report 6547914-4 (Version None)
Quarter: 2010Q1

REPORT INFORMATION
  Report Type: 
  Country: None (occurrence: None)
  Receive Date: 20100124
  Receipt Date: 20091120
  Transmission Date: 20100710
  Serious: No
  Sender: FDA-Public Use
  Company Number: US-ALEXION-A200900999

PATIENT
  Sex: Female

DRUGS (5)
  1. SOLIRIS [Suspect]
     Indication: PAROXYSMAL NOCTURNAL HAEMOGLOBINURIA
     Dosage: 600 MG, QW
     Route: 042
     Dates: start: 20080612, end: 20080703
  2. SOLIRIS [Suspect]
     Dosage: 900 MG, Q2W
     Route: 042
     Dates: start: 20080709
  3. NEXIUM [Concomitant]
     Dosage: UNK
     Route: 048
     Dates: end: 20091201
  4. ATIVAN [Concomitant]
     Dosage: UNK
     Route: 048
     Dates: end: 20091201
  5. TANDEM [Concomitant]
     Dosage: UNK
     Route: 048

REACTIONS (4)
  - APHASIA [None]
  - DYSARTHRIA [None]
  - EYE DISORDER [None]
  - MIGRAINE [None]
